FAERS Safety Report 11972111 (Version 1)
Quarter: 2016Q1

REPORT INFORMATION
  Report Type: Report from Study
  Country: BR (occurrence: BR)
  Receive Date: 20160128
  Receipt Date: 20160128
  Transmission Date: 20160526
  Serious: Yes (Hospitalization)
  Sender: FDA-Public Use
  Company Number: PHHY2016BR009178

PATIENT
  Age: 87 Year
  Sex: Female
  Weight: 88 kg

DRUGS (2)
  1. DIOVAN [Suspect]
     Active Substance: VALSARTAN
     Indication: CARDIAC DISORDER
     Dosage: 160 MG, QD
     Route: 048
     Dates: end: 201512
  2. DIOVAN [Suspect]
     Active Substance: VALSARTAN
     Dosage: 80 MG, BID (TWO TABLETS PER DAY, MORNING/AFTERNOON)
     Route: 048
     Dates: start: 201512

REACTIONS (6)
  - Product use issue [Unknown]
  - Motor dysfunction [Recovering/Resolving]
  - Respiratory disorder [Recovering/Resolving]
  - Erysipelas [Unknown]
  - Cardiac disorder [Recovering/Resolving]
  - Weight decreased [Unknown]

NARRATIVE: CASE EVENT DATE: 201511
